FAERS Safety Report 5217526-3 (Version None)
Quarter: 2007Q1

REPORT INFORMATION
  Report Type: 
  Country: None (occurrence: None)
  Receive Date: 20070124
  Receipt Date: 20070111
  Transmission Date: 20070707
  Serious: Yes (Other)
  Sender: FDA-Public Use
  Company Number: US-ELI_LILLY_AND_COMPANY-US200601001051

PATIENT
  Age: 33 Year
  Sex: Male
  Weight: 140.59 kg

DRUGS (25)
  1. TRICOR [Concomitant]
     Dosage: 145 MG, DAILY (1/D)
     Route: 048
     Dates: start: 20051110
  2. SULAR [Concomitant]
     Dosage: 60 MG, DAILY (1/D)
     Route: 048
     Dates: start: 20000106, end: 20040112
  3. SULAR [Concomitant]
     Dosage: 30 MG, 2/D
     Route: 048
     Dates: start: 20040113, end: 20050523
  4. TENORETIC                               /UNK/ [Concomitant]
     Dosage: 50 MG, UNK
     Dates: start: 20040302, end: 20051017
  5. MONOPRIL [Concomitant]
     Dosage: 10 MG, UNK
     Dates: start: 20041129, end: 20050207
  6. LIPITOR [Concomitant]
     Dosage: 10 MG, UNK
     Route: 048
     Dates: start: 20040122
  7. ZOLOFT [Concomitant]
     Dosage: 100 UNK, DAILY (1/D)
     Route: 048
     Dates: start: 20030702
  8. TRILEPTAL [Concomitant]
     Dosage: 300 MG, 2/D
     Route: 048
     Dates: start: 20030604, end: 20050713
  9. TRILEPTAL [Concomitant]
     Dosage: 300 MG, 3/D
     Route: 048
     Dates: start: 20050714
  10. CLONAZEPAM [Concomitant]
     Dosage: 1 MG, 3/D
     Route: 048
     Dates: start: 20030604
  11. LORTAB [Concomitant]
     Dosage: 7.5 MG, AS NEEDED
     Dates: start: 20050121, end: 20050130
  12. COZAAR [Concomitant]
     Dosage: 50 MG, DAILY (1/D)
     Route: 048
     Dates: start: 20050207
  13. WELLBUTRIN [Concomitant]
     Dosage: 150 MG, DAILY (1/D)
     Dates: start: 20050207, end: 20050425
  14. WELLBUTRIN [Concomitant]
     Dosage: 300 MG, DAILY (1/D)
     Dates: start: 20050425
  15. ULTRAM [Concomitant]
     Dosage: 100 MG, AS NEEDED
     Dates: start: 20050307
  16. LODINE [Concomitant]
     Dosage: 400 MG, 2/D
     Dates: start: 20050407
  17. PRILOSEC [Concomitant]
     Dosage: 40 MG, DAILY (1/D)
  18. PRILOSEC [Concomitant]
     Dosage: 20 MG, 2/D
     Route: 048
     Dates: start: 20050307
  19. PROCARDIA XL [Concomitant]
     Dosage: 60 MG, DAILY (1/D)
     Dates: start: 20050523
  20. LEXAPRO                                 /USA/ [Concomitant]
     Dosage: 10 MG, DAILY (1/D)
     Dates: start: 20050101
  21. COREG [Concomitant]
     Dosage: 6.25 MG, 2/D
     Dates: start: 20051017
  22. COREG [Concomitant]
     Dosage: 6.25 MG, DAILY (1/D)
     Route: 048
     Dates: start: 20060130
  23. HYDROCHLORZIDE [Concomitant]
     Dosage: 12.5 UNK, DAILY (1/D)
     Dates: start: 20051017
  24. ZYPREXA [Suspect]
     Indication: DEPRESSION
     Dosage: 10 MG, DAILY (1/D)
     Route: 048
     Dates: start: 20010101
  25. ZYPREXA [Suspect]
     Dosage: 20 MG, DAILY (1/D)
     Route: 048
     Dates: start: 20031126, end: 20041121

REACTIONS (15)
  - ALANINE AMINOTRANSFERASE INCREASED [None]
  - ASPARTATE AMINOTRANSFERASE INCREASED [None]
  - BLOOD TRIGLYCERIDES INCREASED [None]
  - BODY MASS INDEX INCREASED [None]
  - CHOLECYSTITIS [None]
  - CHOLELITHIASIS [None]
  - COSTOCHONDRITIS [None]
  - DIABETES MELLITUS INADEQUATE CONTROL [None]
  - DIABETES MELLITUS NON-INSULIN-DEPENDENT [None]
  - HEPATIC STEATOSIS [None]
  - HIGH DENSITY LIPOPROTEIN DECREASED [None]
  - HYPERLIPIDAEMIA [None]
  - INJURY [None]
  - NO THERAPEUTIC RESPONSE [None]
  - WEIGHT INCREASED [None]
